FAERS Safety Report 17308375 (Version 2)
Quarter: 2020Q1

REPORT INFORMATION
  Report Type: Report from Study
  Country: US (occurrence: US)
  Receive Date: 20200123
  Receipt Date: 20200227
  Transmission Date: 20200409
  Serious: Yes (Hospitalization)
  Sender: FDA-Public Use
  Company Number: US-ROCHE-2526742

PATIENT
  Sex: Male

DRUGS (3)
  1. ESBRIET [Suspect]
     Active Substance: PIRFENIDONE
     Indication: IDIOPATHIC PULMONARY FIBROSIS
     Route: 048
  2. ESBRIET [Suspect]
     Active Substance: PIRFENIDONE
     Indication: CHRONIC OBSTRUCTIVE PULMONARY DISEASE
     Route: 048
  3. ESBRIET [Suspect]
     Active Substance: PIRFENIDONE
     Route: 048

REACTIONS (9)
  - Musculoskeletal stiffness [Unknown]
  - Anxiety [Unknown]
  - Myalgia [Unknown]
  - Fatigue [Unknown]
  - Increased tendency to bruise [Unknown]
  - Neck pain [Unknown]
  - Pneumonia [Unknown]
  - Chest pain [Unknown]
  - Arthralgia [Unknown]
